FAERS Safety Report 11545373 (Version 1)
Quarter: 2015Q3

REPORT INFORMATION
  Report Type: Spontaneous
  Country: US (occurrence: None)
  Receive Date: 20150923
  Receipt Date: 20150923
  Transmission Date: 20151125
  Serious: Yes (Hospitalization)
  Sender: FDA-Public Use
  Company Number: None

PATIENT
  Age: 23 Year
  Sex: Male
  Weight: 68.2 kg

DRUGS (2)
  1. HALOPERIDOL. [Suspect]
     Active Substance: HALOPERIDOL
     Indication: AGGRESSION
     Route: 030
     Dates: start: 20150904
  2. LORAZEPAM. [Suspect]
     Active Substance: LORAZEPAM
     Route: 030

REACTIONS (3)
  - Somnolence [None]
  - Bradycardia [None]
  - Blood pressure systolic decreased [None]

NARRATIVE: CASE EVENT DATE: 20150904
